FAERS Safety Report 20568453 (Version 1)
Quarter: 2022Q1

REPORT INFORMATION
  Report Type: Spontaneous
  Country: US (occurrence: US)
  Receive Date: 20220308
  Receipt Date: 20220308
  Transmission Date: 20220423
  Serious: No
  Sender: FDA-Public Use
  Company Number: US-PFIZER INC-202100911205

PATIENT
  Age: 61 Year
  Sex: Female

DRUGS (1)
  1. XELJANZ XR [Suspect]
     Active Substance: TOFACITINIB CITRATE
     Dosage: 11 MG, DAILY
     Route: 048
     Dates: start: 202106

REACTIONS (3)
  - Product dose omission issue [Recovered/Resolved]
  - Rash [Recovered/Resolved]
  - Eye infection viral [Recovered/Resolved]

NARRATIVE: CASE EVENT DATE: 20210601
